FAERS Safety Report 5003829-4 (Version None)
Quarter: 2006Q2

REPORT INFORMATION
  Report Type: 
  Country: None (occurrence: None)
  Receive Date: 20060515
  Receipt Date: 20060505
  Transmission Date: 20061013
  Serious: Yes (Hospitalization)
  Sender: FDA-Public Use
  Company Number: 2006007881

PATIENT
  Age: 78 Year
  Sex: Male

DRUGS (9)
  1. SPIRONOLACTONE [Suspect]
     Indication: ILL-DEFINED DISORDER
     Dosage: 12.5 MG (12.5 MG, DAILY), ORAL
  2. ASPIRIN [Suspect]
     Indication: ILL-DEFINED DISORDER
  3. COVERSYL  (PERINDOPRIL) [Suspect]
     Indication: ILL-DEFINED DISORDER
     Dosage: 1 MG (1 MG, QD), ORAL
     Route: 048
  4. BUMETANIDE [Suspect]
     Indication: ILL-DEFINED DISORDER
     Dosage: 2 MG (2 MD, DAILY), ORAL
  5. ACENOCOUMAROL           (ACENOCOUMAROL) [Suspect]
     Indication: ILL-DEFINED DISORDER
  6. DIGOXIN [Suspect]
     Indication: ILL-DEFINED DISORDER
     Dosage: 0.125 MG
  7. ATENOLOL [Concomitant]
  8. SIMVASTATIN [Concomitant]
  9. DUTASTERIDE (DUTASTERIDE) [Concomitant]

REACTIONS (16)
  - ANAEMIA [None]
  - ANGINA PECTORIS [None]
  - ANGIOPATHY [None]
  - BENIGN PROSTATIC HYPERPLASIA [None]
  - BLOOD PRESSURE DIASTOLIC DECREASED [None]
  - CARDIAC FAILURE [None]
  - DRUG INTERACTION [None]
  - DYSPNOEA [None]
  - FAECES DISCOLOURED [None]
  - GASTRIC ULCER HAEMORRHAGE [None]
  - HEART RATE IRREGULAR [None]
  - HYPERKALAEMIA [None]
  - INTERNATIONAL NORMALISED RATIO INCREASED [None]
  - PALLOR [None]
  - PLATELET FUNCTION TEST ABNORMAL [None]
  - RENAL IMPAIRMENT [None]
